FAERS Safety Report 7388078 (Version 23)
Quarter: 2013Q4

REPORT INFORMATION
  Report Type: Spontaneous
  Country: US (occurrence: US)
  Receive Date: 20100514
  Receipt Date: 20131204
  Transmission Date: 20140711
  Serious: Yes (Death, Hospitalization, Other)
  Sender: FDA-Public Use
  Company Number: PHEH2010US03417

PATIENT
  Age: 47 Year
  Sex: Female
  Weight: 59.86 kg

DRUGS (48)
  1. AREDIA [Suspect]
     Indication: METASTASES TO BONE
  2. AREDIA [Suspect]
     Indication: BREAST CANCER METASTATIC
  3. ZOMETA [Suspect]
     Indication: BREAST CANCER METASTATIC
     Dosage: 4 MG, QMO
     Route: 042
     Dates: start: 200307, end: 2004
  4. ZOMETA [Suspect]
     Indication: METASTASES TO BONE
  5. BENZODIAZEPINES [Suspect]
  6. LEXAPRO [Concomitant]
  7. ATIVAN [Concomitant]
  8. ROXICET [Concomitant]
  9. CALCIUM [Concomitant]
  10. ANTIBIOTICS [Concomitant]
  11. CUBICIN [Concomitant]
  12. ZYVOX [Concomitant]
  13. FEMARA [Concomitant]
  14. ALPRAZOLAM [Concomitant]
  15. PERCOCET [Concomitant]
  16. CELEBREX [Concomitant]
  17. MORPHINE [Concomitant]
  18. PREVACID [Concomitant]
  19. FENTANYL [Concomitant]
  20. COLACE [Concomitant]
  21. FLAGYL [Concomitant]
  22. ANCEF [Concomitant]
  23. ASPIRIN ^BAYER^ [Concomitant]
  24. HALDOL [Concomitant]
  25. PHENERGAN ^AVENTIS PHARMA^ [Concomitant]
  26. CITRACAL [Concomitant]
  27. HYDROCODONE [Concomitant]
  28. MELOXICAM [Concomitant]
  29. MULTIVITAMINS [Concomitant]
  30. OMEPRAZOLE [Concomitant]
  31. ZOLOFT [Concomitant]
  32. GEMZAR [Concomitant]
     Indication: METASTASES TO BONE
     Dates: start: 200605, end: 200706
  33. FASLODEX [Concomitant]
     Dates: start: 200708
  34. XELODA [Concomitant]
     Dates: start: 200802
  35. AVASTIN [Concomitant]
     Dates: start: 200807
  36. ABRAXANE [Concomitant]
     Dates: start: 200807, end: 200812
  37. NAVELBINE [Concomitant]
     Dates: start: 200901
  38. IXABEPILONE [Concomitant]
     Dates: start: 200905
  39. TAXOTERE [Concomitant]
  40. TAMOXIFEN [Concomitant]
  41. PROTONIX [Concomitant]
     Dosage: 40 MG, QD
     Route: 048
  42. XANAX [Concomitant]
  43. MS CONTIN [Concomitant]
  44. VICODIN [Concomitant]
  45. ARIMIDEX [Concomitant]
  46. CYTOXAN [Concomitant]
  47. METHOTREXAT [Concomitant]
  48. FLUORO-URACIL [Concomitant]

REACTIONS (125)
  - Parotitis [Unknown]
  - Trismus [Unknown]
  - Hyperkalaemia [Unknown]
  - Left atrial dilatation [Unknown]
  - Metastases to neck [Unknown]
  - Tooth abscess [Unknown]
  - Periostitis [Unknown]
  - Periodontal disease [Unknown]
  - Kyphosis [Unknown]
  - Arthralgia [Unknown]
  - Contusion [Unknown]
  - Urinary incontinence [Unknown]
  - Post procedural complication [Unknown]
  - Back pain [Unknown]
  - Pulmonary fibrosis [Unknown]
  - Gallbladder disorder [Unknown]
  - Local swelling [Unknown]
  - Spinal deformity [Unknown]
  - Death [Fatal]
  - Osteonecrosis of jaw [Unknown]
  - Injury [Unknown]
  - Pain [Unknown]
  - Anxiety [Unknown]
  - Anhedonia [Unknown]
  - Insomnia [Unknown]
  - Disability [Unknown]
  - Osteoradionecrosis [Unknown]
  - Neoplasm progression [Unknown]
  - Metastases to spine [Unknown]
  - Bone pain [Unknown]
  - Arthritis [Unknown]
  - Gastrooesophageal reflux disease [Unknown]
  - Iron deficiency anaemia [Unknown]
  - Osteitis [Unknown]
  - Osteoarthritis [Unknown]
  - Oral disorder [Unknown]
  - Hypermetabolism [Unknown]
  - Impaired healing [Unknown]
  - Osteomyelitis [Unknown]
  - Panic disorder [Unknown]
  - Hallucination [Recovering/Resolving]
  - Confusional state [Recovering/Resolving]
  - Drug withdrawal syndrome [Recovering/Resolving]
  - Exposed bone in jaw [Unknown]
  - Pain in jaw [Not Recovered/Not Resolved]
  - Upper respiratory tract infection [Unknown]
  - Impulsive behaviour [Unknown]
  - Paranoia [Recovering/Resolving]
  - Adjustment disorder [Unknown]
  - Affective disorder [Unknown]
  - Reactive psychosis [Recovering/Resolving]
  - Mastication disorder [Unknown]
  - Dysphagia [Unknown]
  - Weight decreased [Unknown]
  - Tooth loss [Unknown]
  - Swelling [Unknown]
  - Mitral valve incompetence [Unknown]
  - Tricuspid valve incompetence [Unknown]
  - Lung disorder [Unknown]
  - Bone lesion [Unknown]
  - Compression fracture [Unknown]
  - Pathological fracture [Unknown]
  - Arteriosclerosis [Unknown]
  - Osteolysis [Unknown]
  - Pancytopenia [Unknown]
  - Lung infiltration [Unknown]
  - Neuropathy peripheral [Unknown]
  - Chest discomfort [Unknown]
  - Pericarditis [Unknown]
  - Pericardial effusion [Unknown]
  - Electrocardiogram T wave inversion [Unknown]
  - Dyspnoea [Unknown]
  - Fatigue [Unknown]
  - Anaemia [Unknown]
  - Pleural effusion [Unknown]
  - Atelectasis [Unknown]
  - Erythema [Unknown]
  - Fibrosis [Unknown]
  - Denture wearer [Unknown]
  - Gingivitis [Unknown]
  - Dental plaque [Unknown]
  - Depression [Unknown]
  - Rash [Unknown]
  - Cellulitis [Unknown]
  - Pyrexia [Unknown]
  - Pseudomonal bacteraemia [Unknown]
  - Pulmonary mass [Unknown]
  - Biliary dilatation [Unknown]
  - Abdominal pain [Recovered/Resolved]
  - Hepatitis [Unknown]
  - Hiatus hernia [Unknown]
  - Peptic ulcer [Unknown]
  - Varicose vein [Unknown]
  - Thyroid disorder [Unknown]
  - Epilepsy [Unknown]
  - Dementia Alzheimer^s type [Unknown]
  - Abscess jaw [Unknown]
  - Menorrhagia [Unknown]
  - Uterine polyp [Unknown]
  - Rib fracture [Unknown]
  - Gallbladder enlargement [Unknown]
  - Pancreatic atrophy [Unknown]
  - Fall [Unknown]
  - Intervertebral disc protrusion [Unknown]
  - Spinal cord compression [Unknown]
  - Spinal column stenosis [Unknown]
  - Spinal osteoarthritis [Unknown]
  - Chest pain [Unknown]
  - Diverticulum intestinal [Unknown]
  - Myelopathy [Unknown]
  - Thrombocytopenia [Unknown]
  - Dysfunctional uterine bleeding [Unknown]
  - Muscle spasms [Unknown]
  - Wound infection [Unknown]
  - Muscle atrophy [Unknown]
  - Oedema [Unknown]
  - Ovarian cyst [Unknown]
  - Bone marrow disorder [Unknown]
  - Osteosclerosis [Unknown]
  - Tooth infection [Unknown]
  - Lymphadenopathy [Unknown]
  - Splenomegaly [Unknown]
  - Sinusitis [Unknown]
  - Pulmonary embolism [Unknown]
  - Hepatic steatosis [Unknown]
